FAERS Safety Report 19380107 (Version 1)
Quarter: 2021Q2

REPORT INFORMATION
  Report Type: Spontaneous
  Country: SE (occurrence: SE)
  Receive Date: 20210607
  Receipt Date: 20210607
  Transmission Date: 20210717
  Serious: Yes (Other)
  Sender: FDA-Public Use
  Company Number: SE-ORGANON-O2106SWE000399

PATIENT
  Age: 18 Year

DRUGS (3)
  1. VITRAKVI [Suspect]
     Active Substance: LAROTRECTINIB
     Indication: SARCOMA
     Dosage: UNK
     Dates: end: 202001
  2. MONTELUKAST SODIUM. [Suspect]
     Active Substance: MONTELUKAST SODIUM
     Dosage: UNK
  3. VITRAKVI [Suspect]
     Active Substance: LAROTRECTINIB
     Indication: SARCOMA
     Dosage: UNK (REPORTED AS VITRAKVI 20MG/ML

REACTIONS (3)
  - Mental disorder [Unknown]
  - Asthma [Unknown]
  - Multiple allergies [Unknown]

NARRATIVE: CASE EVENT DATE: 202001
